FAERS Safety Report 6709217-4 (Version None)
Quarter: 2010Q2

REPORT INFORMATION
  Report Type: 
  Country: None (occurrence: None)
  Receive Date: 20100503
  Receipt Date: 20100503
  Transmission Date: 20101027
  Serious: Yes (Life-Threatening)
  Sender: FDA-Public Use
  Company Number: None

PATIENT
  Age: 70 Year
  Sex: Male
  Weight: 85 kg

DRUGS (1)
  1. VENTOLIN [Suspect]
     Indication: DYSPNOEA
     Dosage: ONCE INHAL
     Route: 055
     Dates: start: 20100428, end: 20100429

REACTIONS (2)
  - PRURITUS [None]
  - URTICARIA [None]
